FAERS Safety Report 4426926-0 (Version None)
Quarter: 2004Q3

REPORT INFORMATION
  Report Type: 
  Country: None (occurrence: None)
  Receive Date: 20040811
  Receipt Date: 20040726
  Transmission Date: 20050211
  Serious: Yes (Hospitalization, Other)
  Sender: FDA-Public Use
  Company Number: 04-286-0768

PATIENT
  Sex: Female
  Weight: 110 kg

DRUGS (1)
  1. DAUNORUBICIN LIQUID [Suspect]
     Indication: ACUTE MYELOID LEUKAEMIA
     Dosage: 45MG/M2 IV, DAYS 1-3
     Route: 042
     Dates: start: 20030828

REACTIONS (3)
  - CHONDROCALCINOSIS PYROPHOSPHATE [None]
  - HYPOKALAEMIA [None]
  - PLATELET COUNT DECREASED [None]
